FAERS Safety Report 25714888 (Version 2)
Quarter: 2025Q3

REPORT INFORMATION
  Report Type: Report from Study
  Country: US (occurrence: US)
  Receive Date: 20250822
  Receipt Date: 20250925
  Transmission Date: 20251021
  Serious: Yes (Other)
  Sender: ASTELLAS
  Company Number: US-ASTELLAS-2025-AER-045219

PATIENT
  Age: 33 Year
  Sex: Male

DRUGS (14)
  1. ZOLBETUXIMAB [Suspect]
     Active Substance: ZOLBETUXIMAB
     Indication: Gastric cancer
     Route: 042
     Dates: start: 202502
  2. FLUOROURACIL [Concomitant]
     Active Substance: FLUOROURACIL
     Indication: Gastric cancer
     Route: 065
     Dates: start: 202501
  3. OPDIVO [Concomitant]
     Active Substance: NIVOLUMAB
     Indication: Gastric cancer
     Route: 065
  4. OPDIVO [Concomitant]
     Active Substance: NIVOLUMAB
     Route: 065
  5. NIVOLUMAB [Concomitant]
     Active Substance: NIVOLUMAB
     Indication: Gastric cancer
     Route: 065
     Dates: start: 202407
  6. BACTRIM DS [Concomitant]
     Active Substance: SULFAMETHOXAZOLE\TRIMETHOPRIM
     Indication: Product used for unknown indication
     Route: 065
  7. ELIQUIS [Concomitant]
     Active Substance: APIXABAN
     Indication: Pulmonary embolism
     Dosage: ONGOING?(ALSO REPORTED AS 2.5 MG BID)
     Route: 048
  8. OCTREOTIDE [Concomitant]
     Active Substance: OCTREOTIDE
     Indication: Product used for unknown indication
     Route: 065
  9. ESOMEPRAZOLE [Concomitant]
     Active Substance: ESOMEPRAZOLE
     Indication: Product used for unknown indication
     Dosage: 40 MG DELAYED RELEASE CAPSULE?ONGOING
     Route: 065
  10. ACETAMINOPHEN\OXYCODONE HYDROCHLORIDE [Concomitant]
     Active Substance: ACETAMINOPHEN\OXYCODONE HYDROCHLORIDE
     Indication: Product used for unknown indication
     Dosage: 5MG-325 MG TABLET, TAKE 1 TABLET TWICE A DAY AS NEEDED?ONGOING
     Route: 048
  11. ROBINUL [Concomitant]
     Active Substance: GLYCOPYRROLATE
     Indication: Product used for unknown indication
     Route: 065
  12. TRAMADOL [Concomitant]
     Active Substance: TRAMADOL
     Indication: Pain
     Dosage: 1 MG TABLET, EVERY 6 HOURS AS NEEDED?ONGOING
     Route: 065
  13. GLUTAMINE [Concomitant]
     Active Substance: GLUTAMINE
     Indication: Product used for unknown indication
     Dosage: ONGOING
     Route: 048
  14. SUCRALFATE [Concomitant]
     Active Substance: SUCRALFATE
     Indication: Product used for unknown indication
     Dosage: 1 TABLET BY MOUTH 4 TIMES A DAY BEFORE MEALS?ONGOING
     Route: 048

REACTIONS (2)
  - Colitis [Recovered/Resolved]
  - Salivary hypersecretion [Recovered/Resolved]

NARRATIVE: CASE EVENT DATE: 20250201
